FAERS Safety Report 16820647 (Version 1)
Quarter: 2019Q3

REPORT INFORMATION
  Report Type: Spontaneous
  Country: US (occurrence: US)
  Receive Date: 20190918
  Receipt Date: 20190918
  Transmission Date: 20191005
  Serious: No
  Sender: FDA-Public Use
  Company Number: US-AUROBINDO-AUR-APU-2018-046898

PATIENT
  Age: 62 Year
  Sex: Male
  Weight: 82 kg

DRUGS (1)
  1. PHENTERMINE HYDROCHLORIDE TABLETS USP, 37.5 MG [Suspect]
     Active Substance: PHENTERMINE HYDROCHLORIDE
     Indication: PAIN
     Dosage: 6 DOSAGE FORM, DAILY
     Route: 065
     Dates: start: 20180823

REACTIONS (4)
  - Insomnia [Unknown]
  - Vomiting [Unknown]
  - Nausea [Unknown]
  - Migraine [Unknown]

NARRATIVE: CASE EVENT DATE: 20180827
